FAERS Safety Report 11631323 (Version 2)
Quarter: 2015Q4

REPORT INFORMATION
  Report Type: Report from Study
  Country: BR (occurrence: BR)
  Receive Date: 20151014
  Receipt Date: 20151222
  Transmission Date: 20160304
  Serious: Yes (Other)
  Sender: FDA-Public Use
  Company Number: PHHY2015BR113458

PATIENT
  Sex: Male
  Weight: 70 kg

DRUGS (10)
  1. AEROLIN [Concomitant]
     Active Substance: ALBUTEROL
     Indication: PRODUCT USED FOR UNKNOWN INDICATION
     Route: 065
  2. PARIET [Concomitant]
     Active Substance: RABEPRAZOLE SODIUM
     Indication: PRODUCT USED FOR UNKNOWN INDICATION
     Route: 065
  3. NIQUITIN [Suspect]
     Active Substance: NICOTINE
     Indication: PRODUCT USED FOR UNKNOWN INDICATION
     Route: 065
  4. SPIRIVA [Suspect]
     Active Substance: TIOTROPIUM BROMIDE MONOHYDRATE
     Indication: PRODUCT USED FOR UNKNOWN INDICATION
     Route: 065
  5. FORASEQ [Suspect]
     Active Substance: BUDESONIDE\FORMOTEROL FUMARATE
     Indication: DYSPNOEA
     Dosage: 1 DF(12/400 UG) 4:00 A.M 2 CAPSULES AND 4:00 P.M 2 CAPSULES
     Route: 055
     Dates: start: 2004
  6. DIAZEPAM. [Concomitant]
     Active Substance: DIAZEPAM
     Indication: PRODUCT USED FOR UNKNOWN INDICATION
     Route: 065
  7. NICOTINELL [Suspect]
     Active Substance: NICOTINE
     Indication: SMOKING CESSATION THERAPY
     Dosage: 1 DF, QD (7 MG, 7 TRANSDERMAL PATCHES)
     Route: 062
     Dates: start: 20141015
  8. NICORETTE//NICOTINE BITARTRATE [Suspect]
     Active Substance: NICOTINE BITARTRATE
     Indication: SMOKING CESSATION THERAPY
     Dosage: 2 TO 4 MG, QD, 1 OR 2 (CHEWING GUMS PER DAY)
     Route: 065
  9. PYLORIPAC [Concomitant]
     Active Substance: AMOXICILLIN\CLARITHROMYCIN\LANSOPRAZOLE
     Indication: PRODUCT USED FOR UNKNOWN INDICATION
     Route: 065
  10. FORASEQ [Suspect]
     Active Substance: BUDESONIDE\FORMOTEROL FUMARATE
     Indication: EMPHYSEMA
     Dosage: 4 DF, QD (12/200 MCG) 4:00 A.M 2 CAPSULES AND 4:00 P.M 2 CAPSULES.
     Route: 055
     Dates: start: 20030812, end: 2004

REACTIONS (17)
  - Swelling face [Unknown]
  - Dyspnoea [Unknown]
  - Dysphonia [Recovered/Resolved]
  - Oesophageal candidiasis [Recovering/Resolving]
  - Malaise [Unknown]
  - Arterial disorder [Unknown]
  - Ulcer [Unknown]
  - Renal cyst [Unknown]
  - Helicobacter gastritis [Unknown]
  - Local swelling [Unknown]
  - Muscle atrophy [Unknown]
  - Bladder cyst [Unknown]
  - Head discomfort [Unknown]
  - Cholelithiasis [Unknown]
  - Hiccups [Unknown]
  - Poisoning [Unknown]
  - Laryngeal disorder [Unknown]

NARRATIVE: CASE EVENT DATE: 2014
